FAERS Safety Report 9922682 (Version 1)
Quarter: 2014Q1

REPORT INFORMATION
  Report Type: Spontaneous
  Country: GB (occurrence: GB)
  Receive Date: 20140225
  Receipt Date: 20140225
  Transmission Date: 20141002
  Serious: Yes (Other)
  Sender: FDA-Public Use
  Company Number: GB-ALLERGAN-1403462US

PATIENT
  Age: 62 Year
  Sex: Male

DRUGS (1)
  1. LUMIGAN [Suspect]
     Indication: OCULAR HYPERTENSION
     Dosage: INSTILL ONCE DAILY
     Route: 061
     Dates: start: 20130328, end: 20131014

REACTIONS (3)
  - Cutis laxa [Not Recovered/Not Resolved]
  - Eye swelling [Not Recovered/Not Resolved]
  - Lid sulcus deepened [Not Recovered/Not Resolved]
